FAERS Safety Report 8592034-0 (Version None)
Quarter: 2012Q3

REPORT INFORMATION
  Report Type: 
  Country: None (occurrence: None)
  Receive Date: 20120814
  Receipt Date: 20120807
  Transmission Date: 20120928
  Serious: Yes (Hospitalization, Other)
  Sender: FDA-Public Use
  Company Number: PHHY2011US08463

PATIENT
  Sex: Female
  Weight: 113.38 kg

DRUGS (5)
  1. GLEEVEC [Suspect]
     Indication: CHRONIC MYELOID LEUKAEMIA
     Dosage: 400 MG, QD
     Route: 048
     Dates: start: 20100608, end: 20101001
  2. PREDNISONE TAB [Concomitant]
     Indication: ASTHMA
     Dosage: 10 MG, PRN
     Dates: start: 20100722, end: 20101203
  3. GLEEVEC [Suspect]
     Dosage: 600MG DAILY
     Route: 048
     Dates: start: 20101025
  4. GLEEVEC [Suspect]
     Dosage: 600MG DAILY
     Route: 048
     Dates: start: 20101025, end: 20101203
  5. ALLOPURINOL [Concomitant]
     Indication: ASTHMA
     Dosage: UNK UKN, UNK
     Route: 048
     Dates: start: 20100208, end: 20100722

REACTIONS (13)
  - NAUSEA [None]
  - PNEUMONIA [None]
  - CHEST PAIN [None]
  - PYREXIA [None]
  - BRONCHITIS [None]
  - DYSPNOEA [None]
  - DIARRHOEA [None]
  - WHITE BLOOD CELL COUNT INCREASED [None]
  - ASTHMA [None]
  - PULMONARY MASS [None]
  - INCREASED UPPER AIRWAY SECRETION [None]
  - COUGH [None]
  - VOMITING [None]
